FAERS Safety Report 6495908-X (Version None)
Quarter: 2009Q4

REPORT INFORMATION
  Report Type: 
  Country: None (occurrence: None)
  Receive Date: 20091214
  Receipt Date: 20090826
  Transmission Date: 20100525
  Serious: No
  Sender: FDA-Public Use
  Company Number: US-BRISTOL-MYERS SQUIBB COMPANY-14756134

PATIENT
  Age: 22 Year
  Sex: Female

DRUGS (1)
  1. ABILIFY [Suspect]
     Indication: BIPOLAR DISORDER

REACTIONS (5)
  - CONTUSION [None]
  - FATIGUE [None]
  - FEELING JITTERY [None]
  - HEADACHE [None]
  - SWELLING FACE [None]
